FAERS Safety Report 18688212 (Version 3)
Quarter: 2021Q1

REPORT INFORMATION
  Report Type: Other
  Country: HU (occurrence: HU)
  Receive Date: 20201231
  Receipt Date: 20210127
  Transmission Date: 20210419
  Serious: Yes (Hospitalization)
  Sender: FDA-Public Use
  Company Number: HU-ROCHE-2717119

PATIENT
  Age: 5 Year
  Sex: Male
  Weight: 22 kg

DRUGS (7)
  1. STEROFUNDIN [Concomitant]
     Active Substance: CALCIUM CHLORIDE\MAGNESIUM CHLORIDE\POTASSIUM CHLORIDE\SODIUM ACETATE\SODIUM CHLORIDE
  2. KCL [Concomitant]
     Active Substance: POTASSIUM CHLORIDE
     Indication: HYPOKALAEMIA
     Route: 048
  3. RISDIPLAM. [Suspect]
     Active Substance: RISDIPLAM
     Indication: SPINAL MUSCULAR ATROPHY
     Dosage: 5 MG/ 6,6 ML, DAILY ONCE
     Dates: start: 20200713, end: 20200713
  4. FLIXOTIDE [Concomitant]
     Active Substance: FLUTICASONE PROPIONATE
     Dosage: 2X1 PUFF
  5. CEBION [Concomitant]
     Dosage: 1 INTO 10 DROPS
  6. ENTEROL (HUNGARY) [Concomitant]
  7. VIGANTOL [Concomitant]
     Route: 048

REACTIONS (15)
  - Hyperhidrosis [Unknown]
  - Pancreatic steatosis [Unknown]
  - Drooling [Unknown]
  - Diarrhoea [Recovered/Resolved]
  - Erythema [Recovered/Resolved]
  - Tachycardia [Recovered/Resolved]
  - Vertigo positional [Unknown]
  - Hepatic steatosis [Unknown]
  - Vomiting [Recovered/Resolved]
  - Pyrexia [Recovered/Resolved]
  - Retching [Unknown]
  - Nystagmus [Recovered/Resolved]
  - Malaise [Recovered/Resolved]
  - Discoloured vomit [Unknown]
  - Face oedema [Recovered/Resolved]

NARRATIVE: CASE EVENT DATE: 20201101
